FAERS Safety Report 23526727 (Version 1)
Quarter: 2024Q1

REPORT INFORMATION
  Report Type: Spontaneous
  Country: FR (occurrence: FR)
  Receive Date: 20240215
  Receipt Date: 20240215
  Transmission Date: 20240410
  Serious: Yes (Other)
  Sender: FDA-Public Use
  Company Number: FR-009507513-2402FRA003091

PATIENT
  Age: 56 Year
  Sex: Female

DRUGS (9)
  1. ISENTRESS [Suspect]
     Active Substance: RALTEGRAVIR POTASSIUM
     Indication: HIV infection
     Dosage: 800 MILLIGRAM, QD
     Route: 048
     Dates: start: 20140413, end: 20170512
  2. TIVICAY [Suspect]
     Active Substance: DOLUTEGRAVIR SODIUM
     Indication: HIV infection
     Dosage: 50 MILLIGRAM, Q12H
     Route: 048
     Dates: start: 20170512
  3. INTELENCE [Concomitant]
     Active Substance: ETRAVIRINE
     Indication: HIV infection
     Dosage: 400 MILLIGRAM, QD
     Route: 048
     Dates: start: 20070801, end: 20170512
  4. KARDEGIC [Concomitant]
     Active Substance: ASPIRIN DL-LYSINE
     Indication: Myocardial ischaemia
     Dosage: 75 MILLIGRAM, QD
     Route: 048
  5. TELZIR [Concomitant]
     Active Substance: FOSAMPRENAVIR CALCIUM
     Indication: HIV infection
     Dosage: 2 DOSAGE FORM
     Route: 048
     Dates: start: 20070801, end: 20170512
  6. NORVIR [Concomitant]
     Active Substance: RITONAVIR
     Indication: HIV infection
     Dosage: 200 MILLIGRAM, QD
     Route: 048
  7. PREZISTA [Concomitant]
     Active Substance: DARUNAVIR ETHANOLATE
     Indication: HIV infection
     Dosage: 800 MILLIGRAM, QD
     Route: 048
     Dates: start: 20170512
  8. ATORVASTATIN [Concomitant]
     Active Substance: ATORVASTATIN
     Indication: Dyslipidaemia
     Dosage: 80 MILLIGRAM, QD
     Route: 048
  9. ATENOLOL [Concomitant]
     Active Substance: ATENOLOL
     Indication: Myocardial ischaemia
     Dosage: 100 MILLIGRAM, QD
     Route: 048

REACTIONS (1)
  - Weight increased [Not Recovered/Not Resolved]

NARRATIVE: CASE EVENT DATE: 20161108
